FAERS Safety Report 19954713 (Version 2)
Quarter: 2022Q1

REPORT INFORMATION
  Report Type: Spontaneous
  Country: US (occurrence: US)
  Receive Date: 20211014
  Receipt Date: 20220126
  Transmission Date: 20220423
  Serious: Yes (Other)
  Sender: FDA-Public Use
  Company Number: US-PFIZER INC-202101218393

PATIENT
  Age: 60 Year
  Sex: Female
  Weight: 139.68 kg

DRUGS (6)
  1. BOSULIF [Suspect]
     Active Substance: BOSUTINIB MONOHYDRATE
     Indication: Chronic myeloid leukaemia
     Dosage: 400 MG, 1X/DAY
     Route: 048
     Dates: start: 20210819
  2. CURCUMIN [Concomitant]
     Active Substance: CURCUMIN
  3. TYLENOL [Concomitant]
     Active Substance: ACETAMINOPHEN
  4. VITAMIN D3 [Concomitant]
     Active Substance: CHOLECALCIFEROL
  5. CALCIUM CARBONATE\CHOLECALCIFEROL [Concomitant]
     Active Substance: CALCIUM CARBONATE\CHOLECALCIFEROL
  6. MELOXICAM [Concomitant]
     Active Substance: MELOXICAM

REACTIONS (3)
  - COVID-19 [Recovered/Resolved]
  - Diarrhoea [Unknown]
  - Product dose omission in error [Unknown]

NARRATIVE: CASE EVENT DATE: 20220101
